FAERS Safety Report 10314060 (Version 1)
Quarter: 2014Q3

REPORT INFORMATION
  Report Type: Spontaneous
  Country: SI (occurrence: SI)
  Receive Date: 20140718
  Receipt Date: 20140718
  Transmission Date: 20150326
  Serious: Yes (Other)
  Sender: FDA-Public Use
  Company Number: SI-009507513-1407SVN007752

PATIENT
  Age: 65 Year
  Sex: Female

DRUGS (8)
  1. MOXOGAMMA [Concomitant]
     Indication: HYPERTENSION
     Dosage: 0.3 MG, UNK
     Route: 048
  2. MICARDIS [Concomitant]
     Active Substance: TELMISARTAN
     Indication: HYPERTENSION
     Dosage: 80 MG, UNK
     Route: 048
  3. BIONOLIPREL FORTE [Concomitant]
     Indication: HYPERTENSION
     Dosage: 5/1,25 MG
  4. ASPIRIN PROTECT [Concomitant]
     Active Substance: ASPIRIN
     Dosage: 100 MG, UNK
     Route: 048
  5. GLUCOPHAGE [Concomitant]
     Active Substance: METFORMIN HYDROCHLORIDE
     Dosage: 1000 MG, BID/2X1000 MG
  6. DILATREND [Concomitant]
     Active Substance: CARVEDILOL
     Dosage: 25 MG, BID/2 X 25 MG
     Route: 048
  7. JANUVIA [Suspect]
     Active Substance: SITAGLIPTIN PHOSPHATE
     Indication: DIABETES MELLITUS
     Dosage: 100 MG, UNK
     Route: 048
     Dates: start: 20131003, end: 20131107
  8. PRESTANCE [Concomitant]
     Indication: HYPERTENSION
     Dosage: 5 MG/10 MG
     Route: 048

REACTIONS (1)
  - Migraine [Recovered/Resolved]

NARRATIVE: CASE EVENT DATE: 20131003
